FAERS Safety Report 16190534 (Version 4)
Quarter: 2021Q1

REPORT INFORMATION
  Report Type: Spontaneous
  Country: US (occurrence: US)
  Receive Date: 20190412
  Receipt Date: 20210212
  Transmission Date: 20210419
  Serious: Yes (Other)
  Sender: FDA-Public Use
  Company Number: US-PFIZER INC-2019154235

PATIENT
  Age: 74 Year
  Sex: Female
  Weight: 71.21 kg

DRUGS (4)
  1. MESALAMINE. [Concomitant]
     Active Substance: MESALAMINE
     Dosage: 4.8 G, DAILY (FOUR 1.2G, TABLETS, BY MOUTH, DAILY)
     Route: 048
  2. XELJANZ [Suspect]
     Active Substance: TOFACITINIB CITRATE
     Indication: COLITIS ULCERATIVE
     Dosage: 5 MG, 1X/DAY (5 MG Q (EVERY) PM)
  3. XELJANZ [Suspect]
     Active Substance: TOFACITINIB CITRATE
     Dosage: 10 MG, 2X/DAY (10 MG IN THE MORNING AND 10 MG AT NIGHT)
     Route: 048
  4. XELJANZ [Suspect]
     Active Substance: TOFACITINIB CITRATE
     Dosage: 10 MG, 1X/DAY (10 MG Q (EVERY) AM)

REACTIONS (2)
  - Spinal fracture [Unknown]
  - Stool analysis abnormal [Unknown]
